FAERS Safety Report 9955600 (Version 1)
Quarter: 2014Q1

REPORT INFORMATION
  Report Type: Report from Study
  Country: US (occurrence: US)
  Receive Date: 20140304
  Receipt Date: 20140304
  Transmission Date: 20141002
  Serious: No
  Sender: FDA-Public Use
  Company Number: US-ABBVIE-13P-163-1082734-00

PATIENT
  Age: 63 Year
  Sex: Female

DRUGS (5)
  1. HUMIRA [Suspect]
     Indication: PSORIASIS
     Dates: start: 20130118
  2. PAXIL [Concomitant]
     Indication: ANXIETY
  3. CHOLESTYRAMINE [Concomitant]
     Indication: PRODUCT USED FOR UNKNOWN INDICATION
     Dosage: ABOUT 1/2 TABLESPOON IN GLASS OF WATER EACH NIGHT
  4. HCTZ [Concomitant]
     Indication: BLOOD PRESSURE
  5. ESTROGEN VIVELLE DOT/PATCHES [Concomitant]
     Indication: OESTROGEN REPLACEMENT THERAPY

REACTIONS (2)
  - Injection site erythema [Recovering/Resolving]
  - Injection site swelling [Recovering/Resolving]
